FAERS Safety Report 16231786 (Version 1)
Quarter: 2019Q2

REPORT INFORMATION
  Report Type: Spontaneous
  Country: FR (occurrence: FR)
  Receive Date: 20190424
  Receipt Date: 20190424
  Transmission Date: 20190711
  Serious: Yes (Other)
  Sender: FDA-Public Use
  Company Number: FR-ACCORD-123537

PATIENT
  Age: 45 Year
  Sex: Female
  Weight: 112 kg

DRUGS (11)
  1. SIFROL [Concomitant]
     Active Substance: PRAMIPEXOLE
  2. METFORMIN [Concomitant]
     Active Substance: METFORMIN HYDROCHLORIDE
  3. SERETIDE [Concomitant]
     Active Substance: FLUTICASONE PROPIONATE\SALMETEROL XINAFOATE
  4. GLIBENCLAMIDE [Concomitant]
     Active Substance: GLYBURIDE
  5. CHLORMADINONE [Concomitant]
     Active Substance: CHLORMADINONE
  6. ESCITALOPRAM [Concomitant]
     Active Substance: ESCITALOPRAM OXALATE
  7. METHOTREXATE. [Suspect]
     Active Substance: METHOTREXATE
     Indication: PSORIASIS
     Route: 058
     Dates: start: 20171011
  8. CRESTOR [Concomitant]
     Active Substance: ROSUVASTATIN CALCIUM
  9. TARKA [Concomitant]
     Active Substance: TRANDOLAPRIL\VERAPAMIL HYDROCHLORIDE
  10. OMEPRAZOLE. [Concomitant]
     Active Substance: OMEPRAZOLE
  11. VENTOLINE [Concomitant]
     Active Substance: ALBUTEROL

REACTIONS (2)
  - Hepatocellular injury [Recovered/Resolved]
  - Transaminases increased [Recovered/Resolved]

NARRATIVE: CASE EVENT DATE: 20171020
